FAERS Safety Report 6121049-7 (Version None)
Quarter: 2009Q1

REPORT INFORMATION
  Report Type: 
  Country: None (occurrence: None)
  Receive Date: 20090312
  Receipt Date: 20090312
  Transmission Date: 20090719
  Serious: Yes (Other)
  Sender: FDA-Public Use
  Company Number: None

PATIENT
  Age: 25 Year
  Sex: Male
  Weight: 78.9259 kg

DRUGS (1)
  1. WALATIN 10MG/DAY WALATIN [Suspect]
     Indication: MULTIPLE ALLERGIES
     Dosage: 10MG 1/DAY PO
     Route: 048
     Dates: start: 20090308, end: 20090311

REACTIONS (8)
  - AGITATION [None]
  - ANXIETY [None]
  - GASTRIC DISORDER [None]
  - HYPERHIDROSIS [None]
  - INSOMNIA [None]
  - MALAISE [None]
  - TREMOR [None]
  - VOMITING [None]
